FAERS Safety Report 10167122 (Version 1)
Quarter: 2014Q2

REPORT INFORMATION
  Report Type: Spontaneous
  Country: US (occurrence: None)
  Receive Date: 20140509
  Receipt Date: 20140509
  Transmission Date: 20141212
  Serious: Yes (Disabling)
  Sender: FDA-Public Use
  Company Number: None

PATIENT
  Age: 42 Year
  Sex: Female
  Weight: 63.5 kg

DRUGS (1)
  1. LEVAQUIN [Suspect]
     Indication: SINUSITIS
     Route: 048
     Dates: start: 201312

REACTIONS (8)
  - Tendon pain [None]
  - Anxiety [None]
  - Amnesia [None]
  - Muscle twitching [None]
  - Feeling cold [None]
  - Skin wrinkling [None]
  - Insomnia [None]
  - Decreased appetite [None]
